FAERS Safety Report 7290688-2 (Version None)
Quarter: 2011Q1

REPORT INFORMATION
  Report Type: 
  Country: None (occurrence: None)
  Receive Date: 20110214
  Receipt Date: 20110207
  Transmission Date: 20110831
  Serious: No
  Sender: FDA-Public Use
  Company Number: US-JNJFOC-20110102710

PATIENT
  Sex: Female

DRUGS (1)
  1. FENTANYL TRANSDERMAL SYSTEM [Suspect]
     Indication: BACK PAIN
     Route: 062

REACTIONS (5)
  - DECREASED APPETITE [None]
  - POOR QUALITY DRUG ADMINISTERED [None]
  - PAIN [None]
  - DIARRHOEA [None]
  - PRODUCT QUALITY ISSUE [None]
